FAERS Safety Report 12338906 (Version 4)
Quarter: 2016Q2

REPORT INFORMATION
  Report Type: Spontaneous
  Country: IT (occurrence: IT)
  Receive Date: 20160505
  Receipt Date: 20160526
  Transmission Date: 20160815
  Serious: Yes (Other)
  Sender: FDA-Public Use
  Company Number: IT-PFIZER INC-2016241240

PATIENT
  Age: 43 Year
  Sex: Female

DRUGS (6)
  1. GAVISCON /01405501/ [Suspect]
     Active Substance: SODIUM ALGINATE\SODIUM BICARBONATE
     Dosage: AFTER MEALS, AS NEEDED
  2. PANTORC [Suspect]
     Active Substance: PANTOPRAZOLE SODIUM
     Dosage: 20 MG, DAILY
  3. EUTIROX [Suspect]
     Active Substance: LEVOTHYROXINE SODIUM
     Indication: AUTOIMMUNE THYROIDITIS
     Dosage: 50 UG, DAILY
  4. BISOPROLOL FUMARATE. [Suspect]
     Active Substance: BISOPROLOL FUMARATE
     Indication: VENTRICULAR EXTRASYSTOLES
     Dosage: 1.25 MG, UNK
  5. PERIDON /01143201/ [Suspect]
     Active Substance: RISPERIDONE
     Dosage: UNK
  6. XANAX [Suspect]
     Active Substance: ALPRAZOLAM
     Indication: ANXIETY
     Dosage: 0.125MG (0.25MG  HALF TABLET), DAILY

REACTIONS (13)
  - Dyspepsia [Unknown]
  - Salivary hypersecretion [Unknown]
  - Intestinal intraepithelial lymphocytes increased [Unknown]
  - Dysgeusia [Unknown]
  - Dizziness [Unknown]
  - Tongue disorder [Unknown]
  - Helicobacter test positive [Unknown]
  - Influenza [Unknown]
  - Abdominal discomfort [Unknown]
  - Dysentery [Unknown]
  - Anaemia [Unknown]
  - Cough [Unknown]
  - Oesophageal pain [Unknown]
